FAERS Safety Report 14920596 (Version 1)
Quarter: 2018Q2

REPORT INFORMATION
  Report Type: Spontaneous
  Country: CZ (occurrence: CZ)
  Receive Date: 20180521
  Receipt Date: 20180521
  Transmission Date: 20180711
  Serious: Yes (Hospitalization, Other)
  Sender: FDA-Public Use
  Company Number: CZ-SHIRE-CZ201818962

PATIENT

DRUGS (4)
  1. PREDNISONE. [Suspect]
     Active Substance: PREDNISONE
     Indication: PRODUCT USED FOR UNKNOWN INDICATION
     Dosage: 10 MG, 1X/DAY:QD
     Route: 065
  2. AZATHIOPRINE. [Suspect]
     Active Substance: AZATHIOPRINE
     Indication: PRODUCT USED FOR UNKNOWN INDICATION
     Route: 065
  3. 476 (MESALAZINE/MESALAMINE) [Suspect]
     Active Substance: MESALAMINE
     Indication: PRODUCT USED FOR UNKNOWN INDICATION
     Dosage: 4 G, 1X/DAY:QD
     Route: 065
  4. PREDNISONE. [Suspect]
     Active Substance: PREDNISONE
     Dosage: 20 MG, 1X/DAY:QD
     Route: 065

REACTIONS (7)
  - Hyperalbuminaemia [Recovered/Resolved]
  - Abdominal pain upper [Recovered/Resolved]
  - Faecal calprotectin increased [Recovered/Resolved]
  - Weight decreased [Recovered/Resolved]
  - Iron deficiency anaemia [Recovered/Resolved]
  - Condition aggravated [Recovered/Resolved]
  - Diarrhoea haemorrhagic [Recovered/Resolved]
